FAERS Safety Report 16086765 (Version 2)
Quarter: 2020Q2

REPORT INFORMATION
  Report Type: Spontaneous
  Country: FR (occurrence: FR)
  Receive Date: 20190318
  Receipt Date: 20200608
  Transmission Date: 20200713
  Serious: Yes (Other)
  Sender: FDA-Public Use
  Company Number: FR-SHIRE-FR201908240

PATIENT

DRUGS (3)
  1. FEIBA NF [Suspect]
     Active Substance: ANTI-INHIBITOR COAGULANT COMPLEX
     Indication: PRODUCT USED FOR UNKNOWN INDICATION
     Dosage: UNK
     Route: 065
  2. ELOCTA [Suspect]
     Active Substance: EFMOROCTOCOG ALFA
     Dosage: 4000 IU
     Route: 042
     Dates: start: 20190221
  3. ELOCTA [Suspect]
     Active Substance: EFMOROCTOCOG ALFA
     Indication: HAEMOPHILIA
     Dosage: 100 INTERNATIONAL UNIT/KILOGRAM, 2X/DAY:BID
     Route: 042
     Dates: start: 201902

REACTIONS (2)
  - Chemical peritonitis [Unknown]
  - Factor VIII inhibition [Unknown]

NARRATIVE: CASE EVENT DATE: 201902
